FAERS Safety Report 7090794-1 (Version None)
Quarter: 2010Q4

REPORT INFORMATION
  Report Type: 
  Country: None (occurrence: None)
  Receive Date: 20101109
  Receipt Date: 20101105
  Transmission Date: 20110411
  Serious: Yes (Other)
  Sender: FDA-Public Use
  Company Number: US-BRISTOL-MYERS SQUIBB COMPANY-15370778

PATIENT
  Sex: Male

DRUGS (4)
  1. AVAPRO [Suspect]
  2. PRAVACHOL [Suspect]
  3. TRICOR [Suspect]
  4. ACTOS [Suspect]

REACTIONS (3)
  - DEPRESSION [None]
  - ERECTILE DYSFUNCTION [None]
  - RECTAL CANCER [None]
